FAERS Safety Report 10398218 (Version 1)
Quarter: 2014Q1

REPORT INFORMATION
  Report Type: Spontaneous
  Country: US (occurrence: None)
  Receive Date: 20130815
  Receipt Date: 20130815
  Transmission Date: 20141002
  Serious: Yes (Other)
  Sender: FDA-Public Use
  Company Number: ADR-2012-01362

PATIENT
  Sex: Female

DRUGS (4)
  1. BACLOFEN INTRATHECAL (BACLOFEN INJECTION) 150 MCG/ML [Suspect]
     Indication: PAIN
  2. BACLOFEN INTRATHECAL (BACLOFEN INJECTION) 150 MCG/ML [Suspect]
     Indication: POST LAMINECTOMY SYNDROME
  3. SUFENTANIL [Concomitant]
  4. BUPIVACAINE [Concomitant]

REACTIONS (2)
  - No therapeutic response [None]
  - Pain [None]
